FAERS Safety Report 4606097-8 (Version None)
Quarter: 2005Q1

REPORT INFORMATION
  Report Type: 
  Country: None (occurrence: None)
  Receive Date: 20050311
  Receipt Date: 20050210
  Transmission Date: 20050727
  Serious: Yes (Hospitalization, Other)
  Sender: FDA-Public Use
  Company Number: PHEH2005US01993

PATIENT
  Age: 57 Year
  Sex: Female
  Weight: 78 kg

DRUGS (10)
  1. DIOVAN HCT [Suspect]
     Indication: HYPERTENSION
     Dosage: ONE DF, QD
     Route: 048
     Dates: start: 20030101
  2. REBIF [Suspect]
     Indication: MULTIPLE SCLEROSIS
     Dosage: 44 UG, TIW
     Dates: start: 20040101
  3. NORVASK [Concomitant]
     Indication: HYPERTENSION
  4. MAXZIDE [Concomitant]
     Indication: HYPERTENSION
     Dosage: 37.5/25
  5. CELEXA [Concomitant]
     Dosage: 20 MG, UNK
  6. NEURONTIN [Concomitant]
     Dosage: UNK, UNK
     Dates: start: 20040101
  7. LORTAB [Concomitant]
     Indication: PAIN
     Dosage: 7.5/500
  8. RELAFEN [Concomitant]
     Indication: ARTHRITIS
  9. PREMARINA [Concomitant]
  10. NEXIUM [Concomitant]
     Dates: start: 20040101

REACTIONS (8)
  - BACK PAIN [None]
  - BLOOD POTASSIUM DECREASED [None]
  - CHEST PAIN [None]
  - ELECTROLYTE IMBALANCE [None]
  - HYPOKALAEMIA [None]
  - MULTIPLE SCLEROSIS [None]
  - PAIN [None]
  - PYREXIA [None]
